FAERS Safety Report 11218782 (Version 2)
Quarter: 2015Q3

REPORT INFORMATION
  Report Type: Spontaneous
  Country: JP (occurrence: JP)
  Receive Date: 20150625
  Receipt Date: 20150708
  Transmission Date: 20151125
  Serious: Yes (Other)
  Sender: FDA-Public Use
  Company Number: JP-OTSUKA-2015_004189

PATIENT

DRUGS (2)
  1. BISONO TAPE [Concomitant]
     Indication: PRODUCT USED FOR UNKNOWN INDICATION
     Dosage: 4 MG/DAY
     Route: 062
     Dates: start: 20150621, end: 20150622
  2. SAMSCA [Suspect]
     Active Substance: TOLVAPTAN
     Indication: CARDIAC FAILURE
     Dosage: 3.75 MG/DAY
     Route: 048
     Dates: start: 20150618, end: 20150622

REACTIONS (2)
  - Anuria [Recovered/Resolved]
  - Renal impairment [Recovered/Resolved]

NARRATIVE: CASE EVENT DATE: 20150621
